FAERS Safety Report 5379431-1 (Version None)
Quarter: 2007Q3

REPORT INFORMATION
  Report Type: 
  Country: None (occurrence: None)
  Receive Date: 20070705
  Receipt Date: 20070626
  Transmission Date: 20080115
  Serious: Yes (Death, Hospitalization)
  Sender: FDA-Public Use
  Company Number: AT-MERCK-0706AUT00019

PATIENT
  Age: 67 Year
  Sex: Male

DRUGS (3)
  1. CANCIDAS [Suspect]
     Indication: CANDIDIASIS
     Route: 042
     Dates: start: 20070301, end: 20070401
  2. VORICONAZOLE [Suspect]
     Indication: CANDIDIASIS
     Route: 065
     Dates: start: 20070401, end: 20070401
  3. AVELOX [Concomitant]
     Route: 065
     Dates: start: 20070306, end: 20070301

REACTIONS (5)
  - DRUG INEFFECTIVE [None]
  - HEPATIC INFECTION FUNGAL [None]
  - IMMUNE SYSTEM DISORDER [None]
  - INTESTINAL FUNCTIONAL DISORDER [None]
  - ULCER [None]
